FAERS Safety Report 17098809 (Version 1)
Quarter: 2019Q4

REPORT INFORMATION
  Report Type: Spontaneous
  Country: US (occurrence: US)
  Receive Date: 20191130
  Receipt Date: 20191130
  Transmission Date: 20200122
  Serious: Yes (Hospitalization)
  Sender: FDA-Public Use
  Company Number: None

PATIENT
  Age: 41 Year
  Sex: Female
  Weight: 63.9 kg

DRUGS (2)
  1. VITAMIN D [Concomitant]
     Active Substance: VITAMIN D NOS
  2. BOTOX [Suspect]
     Active Substance: ONABOTULINUMTOXINA
     Indication: THERAPEUTIC SKIN CARE TOPICAL
     Dosage: ?          OTHER FREQUENCY:EVERY 4 MONTHS;?
     Route: 030
     Dates: start: 20180201, end: 20190906

REACTIONS (7)
  - Ear congestion [None]
  - Chest discomfort [None]
  - Tinnitus [None]
  - Syncope [None]
  - Dizziness [None]
  - Dyspnoea [None]
  - Choking sensation [None]

NARRATIVE: CASE EVENT DATE: 20190124
